FAERS Safety Report 6113625-2 (Version None)
Quarter: 2009Q1

REPORT INFORMATION
  Report Type: 
  Country: None (occurrence: None)
  Receive Date: 20090312
  Receipt Date: 20090226
  Transmission Date: 20090719
  Serious: Yes (Other)
  Sender: FDA-Public Use
  Company Number: BR-AVENTIS-200911925GDDC

PATIENT
  Age: 86 Year
  Sex: Female
  Weight: 68 kg

DRUGS (6)
  1. LANTUS [Suspect]
     Route: 058
  2. OPTIPEN (INSULIN PUMP) [Suspect]
  3. ORAL ANTIDIABETICS [Concomitant]
     Dosage: DOSE: 1 TABLET
     Route: 048
     Dates: start: 20070101
  4. ATACAND [Concomitant]
     Indication: BLOOD PRESSURE
     Dosage: DOSE: 0.5 TABLET
     Route: 048
     Dates: start: 20070101
  5. CRESTOR [Concomitant]
     Dosage: DOSE: 1 TABLET
     Route: 048
     Dates: start: 20060101
  6. AAS [Concomitant]
     Indication: THROMBOSIS PROPHYLAXIS
     Dosage: DOSE: 1 TABLET BEFORE LUNCH
     Route: 048
     Dates: start: 20050101

REACTIONS (2)
  - HYPOGLYCAEMIC UNCONSCIOUSNESS [None]
  - PNEUMONIA [None]
